FAERS Safety Report 8380666-4 (Version None)
Quarter: 2012Q2

REPORT INFORMATION
  Report Type: 
  Country: None (occurrence: None)
  Receive Date: 20120523
  Receipt Date: 20120510
  Transmission Date: 20120825
  Serious: Yes (Life-Threatening, Hospitalization)
  Sender: FDA-Public Use
  Company Number: US-MYLANLABS-2010S1021040

PATIENT
  Age: 40 Year
  Sex: Female

DRUGS (1)
  1. BACLOFEN [Suspect]
     Indication: OVERDOSE
     Route: 048

REACTIONS (6)
  - TOXICITY TO VARIOUS AGENTS [None]
  - OVERDOSE [None]
  - HYPOTENSION [None]
  - COMA [None]
  - SEIZURE LIKE PHENOMENA [None]
  - APNOEA [None]
